FAERS Safety Report 6821282-2 (Version None)
Quarter: 2010Q2

REPORT INFORMATION
  Report Type: 
  Country: None (occurrence: None)
  Receive Date: 20100630
  Receipt Date: 20100623
  Transmission Date: 20101027
  Serious: Yes (Other)
  Sender: FDA-Public Use
  Company Number: 8052582

PATIENT
  Age: 57 Year
  Sex: Male

DRUGS (1)
  1. XYZAL [Suspect]
     Indication: HYPERSENSITIVITY
     Dosage: (1 TABLET DAILY ORAL)
     Route: 048
     Dates: start: 20010101

REACTIONS (1)
  - MACULOPATHY [None]
